FAERS Safety Report 9321472 (Version 2)
Quarter: 2013Q2

REPORT INFORMATION
  Report Type: Report from Study
  Country: US (occurrence: US)
  Receive Date: 20130531
  Receipt Date: 20130625
  Transmission Date: 20140414
  Serious: No
  Sender: FDA-Public Use
  Company Number: US-VERTEX PHARMACEUTICALS INC-2013-006576

PATIENT
  Age: 20 Year
  Sex: Male

DRUGS (5)
  1. VX-950 (TELAPREVIR) [Suspect]
     Indication: HEPATITIS C
     Dosage: 750 MG, TID
     Route: 048
     Dates: start: 20130120, end: 20130414
  2. PEGASYS [Suspect]
     Indication: HEPATITIS C
     Dosage: UNK
     Dates: start: 20130110
  3. PEGASYS [Suspect]
     Dosage: UNK
  4. PEGASYS [Suspect]
     Dosage: 180 ?G, UNK
  5. RIBAVIRIN [Suspect]
     Indication: HEPATITIS C
     Dosage: 400 MG, BID
     Dates: start: 20130110

REACTIONS (2)
  - Anxiety [Not Recovered/Not Resolved]
  - Neutropenia [Unknown]
